FAERS Safety Report 22227151 (Version 2)
Quarter: 2025Q2

REPORT INFORMATION
  Report Type: Report from Study
  Country: US (occurrence: US)
  Receive Date: 20230419
  Receipt Date: 20250515
  Transmission Date: 20250717
  Serious: No
  Sender: DECIPHERA PHARMACEUTICALS
  Company Number: US-DECIPHERA PHARMACEUTICALS LLC-2023US000330

PATIENT
  Age: 45 Year
  Sex: Female

DRUGS (1)
  1. QINLOCK [Suspect]
     Active Substance: RIPRETINIB
     Indication: Product used for unknown indication
     Dosage: 150 MILLIGRAM, QD

REACTIONS (2)
  - Gastrointestinal disorder [Unknown]
  - Off label use [Unknown]
